FAERS Safety Report 24145976 (Version 3)
Quarter: 2024Q3

REPORT INFORMATION
  Report Type: Report from Study
  Country: US (occurrence: US)
  Receive Date: 20240729
  Receipt Date: 20240805
  Transmission Date: 20241017
  Serious: Yes (Death)
  Sender: ROCHE
  Company Number: US-ROCHE-10000033623

PATIENT
  Age: 65 Year
  Sex: Male

DRUGS (2)
  1. HERCEPTIN [Suspect]
     Active Substance: TRASTUZUMAB
     Indication: Colon cancer
     Route: 042
     Dates: end: 20220113
  2. HERCEPTIN [Suspect]
     Active Substance: TRASTUZUMAB
     Indication: Colon cancer

REACTIONS (2)
  - Death [Fatal]
  - Off label use [Unknown]
